FAERS Safety Report 22293363 (Version 1)
Quarter: 2023Q2

REPORT INFORMATION
  Report Type: Spontaneous
  Country: GB (occurrence: GB)
  Receive Date: 20230508
  Receipt Date: 20230508
  Transmission Date: 20230722
  Serious: Yes (Other)
  Sender: FDA-Public Use
  Company Number: None

PATIENT
  Age: 79 Year
  Sex: Female
  Weight: 112 kg

DRUGS (13)
  1. CLARITHROMYCIN [Suspect]
     Active Substance: CLARITHROMYCIN
     Indication: Product used for unknown indication
     Dosage: 2 DOSAGE FORMS DAILY; UNIT DOSE: 1DF, FREQUENCY: TWICE DAILY
     Route: 065
     Dates: start: 20230418
  2. AMITRIPTYLINE HYDROCHLORIDE [Concomitant]
     Active Substance: AMITRIPTYLINE HYDROCHLORIDE
     Indication: Product used for unknown indication
     Dosage: 2 DOSAGE FORMS DAILY; AT NIGHT, UNIT DOSE: 2DF
     Dates: start: 20170109
  3. COCODAMOL [Concomitant]
     Active Substance: ACETAMINOPHEN\CODEINE PHOSPHATE
     Indication: Product used for unknown indication
     Dosage: TAKE ONE OR TWO TABLETS UPTO FOUR TIMES DAILY F, DURATION: 12 DAYS
     Dates: start: 20230210, end: 20230222
  4. FLUTICASONE FUROATE [Concomitant]
     Active Substance: FLUTICASONE FUROATE
     Indication: Product used for unknown indication
     Dosage: 1 DOSAGE FORMS DAILY; UNIT DOSE: 1DF, FREQUENCY: ONCE DAILY
     Dates: start: 20171010
  5. FUROSEMIDE [Concomitant]
     Active Substance: FUROSEMIDE
     Indication: Product used for unknown indication
     Dosage: .5 DOSAGE FORMS DAILY; EVERY MORNING, UNIT DOSE: 0.5 DF, FREQUENCY: ONCE DAILY, DURATION: 28 DAYS
     Dates: start: 20230210, end: 20230310
  6. GLICLAZIDE [Concomitant]
     Active Substance: GLICLAZIDE
     Indication: Product used for unknown indication
     Dosage: 1 DOSAGE FORMS DAILY; WITH MAIN MEAL OF THE DAY, UNIT DOSE: 1DF, FREQUENCY: ONCE DAILY
     Dates: start: 20200615
  7. HYDROCORTISONE [Concomitant]
     Active Substance: HYDROCORTISONE
     Indication: Product used for unknown indication
     Dosage: 2 DOSAGE FORMS DAILY; APPLY, UNIT DOSE: 1DF, FREQUENCY: TWICE DAILY, DURATION: 7 DAYS
     Route: 061
     Dates: start: 20230329, end: 20230405
  8. INDAPAMIDE [Concomitant]
     Active Substance: INDAPAMIDE
     Indication: Product used for unknown indication
     Dosage: 1 DOSAGE FORMS DAILY; EVERY MORNING, UNIT DOSE: 1DF
     Dates: start: 20220801
  9. LEVOTHYROXINE [Concomitant]
     Active Substance: LEVOTHYROXINE
     Indication: Product used for unknown indication
     Dosage: 1 DOSAGE FORMS DAILY; UNIT DOSE: 1DF, FREQUENCY: ONCE DAILY
     Dates: start: 20210210
  10. ALBUTEROL [Concomitant]
     Active Substance: ALBUTEROL
     Indication: Product used for unknown indication
     Dosage: 1 -2 PUFFS AS REQUIRED MAX 8 PER DAY
     Dates: start: 20171010
  11. METFORMIN HYDROCHLORIDE [Concomitant]
     Active Substance: METFORMIN HYDROCHLORIDE
     Indication: Product used for unknown indication
     Dosage: 2 DOSAGE FORMS DAILY; WITH MAIN MEAL, UNIT DOSE: 2DF, FREQUENCY: ONCE DAILY
     Dates: start: 20190903
  12. BENZALKONIUM CHLORIDE\DIMETHICONE\HYDROCORTISONE\NYSTATIN [Concomitant]
     Active Substance: BENZALKONIUM CHLORIDE\DIMETHICONE\HYDROCORTISONE\NYSTATIN
     Indication: Product used for unknown indication
     Dosage: 3 DOSAGE FORMS DAILY; APPLY, UNIT DOSE: 1DF, FREQUENCY: THRICE DAILY
     Route: 061
     Dates: start: 20230418
  13. TRELEGY ELLIPTA [Concomitant]
     Active Substance: FLUTICASONE FUROATE\UMECLIDINIUM BROMIDE\VILANTEROL TRIFENATATE
     Indication: Product used for unknown indication
     Dosage: 1 DOSAGE FORMS DAILY; UNIT DOSE: 1DF, FREQUENCY: ONCE DAILY
     Route: 055
     Dates: start: 20220824

REACTIONS (2)
  - Chest discomfort [Recovered/Resolved]
  - Nausea [Recovered/Resolved]
